FAERS Safety Report 25518633 (Version 1)
Quarter: 2025Q3

REPORT INFORMATION
  Report Type: Spontaneous
  Country: US (occurrence: US)
  Receive Date: 20250704
  Receipt Date: 20250704
  Transmission Date: 20251021
  Serious: Yes (Disabling, Other)
  Sender: ABBVIE
  Company Number: US-ABBVIE-6351576

PATIENT
  Age: 103 Year
  Sex: Female
  Weight: 49 kg

DRUGS (4)
  1. DEPAKOTE [Suspect]
     Active Substance: DIVALPROEX SODIUM
     Indication: Mood swings
     Dosage: FORM STRENGTH: 250 MILLIGRAM, DURATION:  A WEEK AND A HALF
     Route: 048
  2. DEPAKOTE [Suspect]
     Active Substance: DIVALPROEX SODIUM
     Indication: Mood swings
     Route: 048
     Dates: start: 2025
  3. DEPAKOTE [Suspect]
     Active Substance: DIVALPROEX SODIUM
     Indication: Mood swings
     Route: 048
  4. DEPAKOTE [Suspect]
     Active Substance: DIVALPROEX SODIUM
     Indication: Mood swings
     Dosage: 60 MG BID LOWER DOSE
     Route: 048

REACTIONS (16)
  - Blindness [Unknown]
  - Asthenia [Not Recovered/Not Resolved]
  - Wrong technique in product usage process [Unknown]
  - Adverse reaction [Unknown]
  - Catatonia [Unknown]
  - Blood pressure decreased [Unknown]
  - Movement disorder [Unknown]
  - Fall [Unknown]
  - Memory impairment [Unknown]
  - Skin discolouration [Unknown]
  - Hallucination [Unknown]
  - Therapy change [Not Recovered/Not Resolved]
  - Mood altered [Unknown]
  - Off label use [Unknown]
  - General physical health deterioration [Unknown]
  - Therapeutic product effect decreased [Unknown]
